FAERS Safety Report 5455065-5 (Version None)
Quarter: 2007Q3

REPORT INFORMATION
  Report Type: 
  Country: None (occurrence: None)
  Receive Date: 20070913
  Receipt Date: 20070823
  Transmission Date: 20080115
  Serious: Yes (Death)
  Sender: FDA-Public Use
  Company Number: 6037444

PATIENT
  Age: 55 Year
  Sex: Female

DRUGS (2)
  1. CLARITHRCMYCIN(CLARITHRCMYCIN) [Suspect]
     Indication: PNEUMONIA
     Dosage: 1,5 MG (0,5 MG, 3 IN 1 D), ORAL
     Route: 048
  2. COLCHICUM JTL LIQ [Suspect]
     Indication: GOUT
     Dosage: 1,5 MG (0,5 MG,3 IN 1 D), ORAL
     Route: 048

REACTIONS (3)
  - BONE MARROW FAILURE [None]
  - DRUG INTERACTION [None]
  - FEBRILE NEUTROPENIA [None]
